FAERS Safety Report 15817620 (Version 1)
Quarter: 2019Q1

REPORT INFORMATION
  Report Type: Spontaneous
  Country: US (occurrence: US)
  Receive Date: 20190113
  Receipt Date: 20190113
  Transmission Date: 20190417
  Serious: No
  Sender: FDA-Public Use
  Company Number: US-COOPERSURGICAL, INC.-US-2018CPS017490

PATIENT
  Sex: Female

DRUGS (2)
  1. VITAMINS [Concomitant]
     Active Substance: VITAMINS
  2. PARAGARD T 380A [Suspect]
     Active Substance: COPPER
     Indication: CONTRACEPTION
     Route: 065

REACTIONS (4)
  - Menstruation delayed [Not Recovered/Not Resolved]
  - Abdominal discomfort [Recovered/Resolved]
  - Abdominal distension [Recovered/Resolved]
  - Vaginal haemorrhage [Recovered/Resolved]

NARRATIVE: CASE EVENT DATE: 20171025
